FAERS Safety Report 18347468 (Version 3)
Quarter: 2020Q4

REPORT INFORMATION
  Report Type: Spontaneous
  Country: LT (occurrence: LT)
  Receive Date: 20201006
  Receipt Date: 20201104
  Transmission Date: 20210114
  Serious: Yes (Hospitalization)
  Sender: FDA-Public Use
  Company Number: NVSC2020LT263068

PATIENT
  Age: 66 Year
  Sex: Male
  Weight: 80 kg

DRUGS (1)
  1. METOPROLOL. [Suspect]
     Active Substance: METOPROLOL
     Indication: MALAISE
     Dosage: UNK (THE DOSE AND AMOUNT WERE UNCLEAR)
     Route: 048
     Dates: start: 20200911, end: 20200911

REACTIONS (4)
  - Off label use [Recovered/Resolved]
  - Accidental overdose [Recovered/Resolved]
  - Hypotonia [Recovered/Resolved]
  - Medication error [Recovered/Resolved]

NARRATIVE: CASE EVENT DATE: 20200911
